FAERS Safety Report 4315268-X (Version None)
Quarter: 2004Q1

REPORT INFORMATION
  Report Type: 
  Country: None (occurrence: None)
  Receive Date: 20040309
  Receipt Date: 20040220
  Transmission Date: 20041129
  Serious: Yes (Death, Hospitalization)
  Sender: FDA-Public Use
  Company Number: DE_040213065

PATIENT
  Age: 64 Year
  Sex: Male

DRUGS (3)
  1. XIGRIS [Suspect]
     Indication: SEPTIC SHOCK
     Dates: start: 20040212
  2. HYDROCORTISONE [Concomitant]
  3. CATECHOLAMINES [Concomitant]

REACTIONS (3)
  - DIALYSIS [None]
  - MULTI-ORGAN FAILURE [None]
  - PANCREATIC NECROSIS [None]
